FAERS Safety Report 7648743-0 (Version None)
Quarter: 2011Q3

REPORT INFORMATION
  Report Type: 
  Country: None (occurrence: None)
  Receive Date: 20110801
  Receipt Date: 20110726
  Transmission Date: 20111222
  Serious: Yes (Death)
  Sender: FDA-Public Use
  Company Number: PHHY2011US67752

PATIENT
  Sex: Female

DRUGS (15)
  1. ULTRAM [Concomitant]
     Dosage: 50 MG
  2. CALCIUM D [Concomitant]
  3. ASPIRIN [Concomitant]
     Dosage: 81 MG
  4. COREG [Concomitant]
     Dosage: 3.125 MG
  5. LIPITOR [Concomitant]
     Dosage: 10 MG
  6. MOBIC [Concomitant]
     Dosage: 7.5 MG
  7. EXJADE [Suspect]
     Dosage: 4 DF, QD
     Route: 048
  8. DEMADEX [Concomitant]
     Dosage: 5 MG
  9. FOSAMAX [Concomitant]
     Dosage: 10 MG
  10. DIGOXIN [Concomitant]
     Dosage: 0.125 MG
  11. ALLOPURINOL [Concomitant]
     Dosage: 50 MG
  12. AVAPRO [Concomitant]
     Dosage: 75 MG
  13. NEXIUM [Concomitant]
     Dosage: 20 MG
  14. PLAVIX [Concomitant]
     Dosage: 75 MG
  15. CELEXA [Concomitant]
     Dosage: 10 MG

REACTIONS (1)
  - DEATH [None]
